FAERS Safety Report 24439478 (Version 1)
Quarter: 2024Q4

REPORT INFORMATION
  Report Type: Spontaneous
  Country: RU (occurrence: RU)
  Receive Date: 20241015
  Receipt Date: 20241015
  Transmission Date: 20250114
  Serious: Yes (Death, Hospitalization)
  Sender: ABBVIE
  Company Number: RU-ABBVIE-5962581

PATIENT
  Age: 8 Year
  Sex: Female
  Weight: 17 kg

DRUGS (4)
  1. HUMIRA [Suspect]
     Active Substance: ADALIMUMAB
     Indication: Product used for unknown indication
     Route: 058
     Dates: start: 20230126, end: 20230126
  2. HUMIRA [Suspect]
     Active Substance: ADALIMUMAB
     Route: 058
     Dates: start: 20221215, end: 20221215
  3. HUMIRA [Suspect]
     Active Substance: ADALIMUMAB
     Route: 058
     Dates: start: 20221229, end: 20221229
  4. HUMIRA [Suspect]
     Active Substance: ADALIMUMAB
     Route: 058
     Dates: start: 20230112, end: 20230112

REACTIONS (4)
  - Death [Fatal]
  - Pyrexia [Unknown]
  - Rhinitis [Unknown]
  - Influenza [Unknown]

NARRATIVE: CASE EVENT DATE: 20230130
